FAERS Safety Report 4676954-5 (Version None)
Quarter: 2005Q2

REPORT INFORMATION
  Report Type: 
  Country: None (occurrence: None)
  Receive Date: 20050526
  Receipt Date: 20050517
  Transmission Date: 20051028
  Serious: Yes (Hospitalization)
  Sender: FDA-Public Use
  Company Number: GXKR2005IN01074

PATIENT
  Age: 23 Year
  Sex: Male

DRUGS (2)
  1. ISONIAZID [Suspect]
     Dosage: OVERDOSE: ABOUT 9 G, ORAL
     Route: 048
  2. ALCOHOL (ETHANOL) [Concomitant]

REACTIONS (9)
  - COMA [None]
  - CONVULSION [None]
  - DRUG TOXICITY [None]
  - IRRITABILITY [None]
  - LOSS OF CONSCIOUSNESS [None]
  - METABOLIC ACIDOSIS [None]
  - NODAL RHYTHM [None]
  - OVERDOSE [None]
  - VOMITING [None]
